FAERS Safety Report 11367796 (Version 1)
Quarter: 2015Q3

REPORT INFORMATION
  Report Type: Spontaneous
  Country: US (occurrence: None)
  Receive Date: 20150810
  Receipt Date: 20150810
  Transmission Date: 20151125
  Serious: No
  Sender: FDA-Public Use
  Company Number: None

PATIENT
  Age: 42 Year
  Sex: Female

DRUGS (4)
  1. METHADONE [Concomitant]
     Active Substance: METHADONE HYDROCHLORIDE
  2. SEROQUEL [Concomitant]
     Active Substance: QUETIAPINE FUMARATE
  3. KLONOPIN [Suspect]
     Active Substance: CLONAZEPAM
     Route: 048
     Dates: start: 20150615, end: 20150615
  4. DIVALPROEX [Concomitant]
     Active Substance: DIVALPROEX SODIUM

REACTIONS (1)
  - Sedation [None]

NARRATIVE: CASE EVENT DATE: 20150606
